FAERS Safety Report 4288611-8 (Version None)
Quarter: 2004Q1

REPORT INFORMATION
  Report Type: 
  Country: None (occurrence: None)
  Receive Date: 20040209
  Receipt Date: 20040105
  Transmission Date: 20041129
  Serious: Yes (Other)
  Sender: FDA-Public Use
  Company Number: CH-GLAXOSMITHKLINE-B0319182A

PATIENT
  Age: 6 Year
  Sex: Female
  Weight: 25 kg

DRUGS (3)
  1. AXOTIDE [Suspect]
     Indication: ASTHMA
     Dosage: .05MG TWICE PER DAY
     Route: 045
     Dates: start: 20031107, end: 20031201
  2. SALBUTAMOL [Concomitant]
     Indication: ASTHMA
     Dosage: .1MG EIGHT TIMES PER DAY
     Route: 045
     Dates: start: 20031107
  3. BETAMETHASON [Concomitant]
     Dosage: 5MG PER DAY
     Route: 048
     Dates: start: 20031107, end: 20031108

REACTIONS (3)
  - DIFFICULTY IN WALKING [None]
  - HALLUCINATION, VISUAL [None]
  - VISUAL DISTURBANCE [None]
